FAERS Safety Report 8861984 (Version 1)
Quarter: 2012Q4

REPORT INFORMATION
  Report Type: 
  Country: US (occurrence: US)
  Receive Date: 20121025
  Receipt Date: 20121025
  Transmission Date: 20130627
  Serious: Yes (Other)
  Sender: FDA-Public Use
  Company Number: US-PFIZER INC-2012261978

PATIENT
  Age: 55 Year
  Sex: Female

DRUGS (14)
  1. GENOTROPIN MQ [Suspect]
     Indication: GROWTH HORMONE DEFICIENCY
     Dosage: 0.8 mg, 1x/day
  2. DEPAKOTE [Concomitant]
     Dosage: 125 mg, UNK
  3. TOPAMAX [Concomitant]
     Dosage: 25 mg, UNK
  4. COUMADIN [Concomitant]
     Dosage: 1 mg, UNK
  5. CYMBALTA [Concomitant]
     Dosage: 20 mg, UNK
  6. LIPITOR [Concomitant]
     Dosage: 10 mg, UNK
  7. PREMARIN [Concomitant]
     Dosage: 0.625 mg, UNK
  8. ZYRTEC [Concomitant]
     Dosage: 10 mg, UNK
  9. LOTRISONE LOT [Concomitant]
  10. RHINOCORT SUS AQUA [Concomitant]
  11. LOTRIMIN ULTRA [Concomitant]
     Dosage: UNK
  12. HYDROCO/APAP [Concomitant]
     Dosage: 10/325 mg
  13. ZANTAC [Concomitant]
  14. DOXYCYCLINE [Concomitant]
     Dosage: 150 mg, UNK

REACTIONS (1)
  - Rocky mountain spotted fever [Unknown]
